FAERS Safety Report 11719467 (Version 1)
Quarter: 2015Q4

REPORT INFORMATION
  Report Type: Spontaneous
  Country: US (occurrence: US)
  Receive Date: 20151110
  Receipt Date: 20151110
  Transmission Date: 20160304
  Serious: Yes (Other)
  Sender: FDA-Public Use
  Company Number: US-ASTRAZENECA-2015SF06796

PATIENT
  Age: 779 Month
  Sex: Female
  Weight: 46.7 kg

DRUGS (15)
  1. MOVANTIK [Suspect]
     Active Substance: NALOXEGOL OXALATE
     Indication: CONSTIPATION
     Route: 048
     Dates: start: 20151013
  2. CELEXA [Concomitant]
     Active Substance: CITALOPRAM HYDROBROMIDE
     Indication: DEPRESSION
     Route: 048
  3. COUMADIN [Concomitant]
     Active Substance: WARFARIN SODIUM
     Route: 048
  4. VITAFUSION WOMENS MULTIVITAMIN [Concomitant]
     Indication: ASTHENIA
     Dosage: DAILY
     Route: 048
  5. VITAFUSION WOMENS MULTIVITAMIN [Concomitant]
     Indication: METABOLIC DISORDER
     Dosage: DAILY
     Route: 048
  6. REFRESH TEARS [Concomitant]
     Active Substance: CARBOXYMETHYLCELLULOSE SODIUM
     Indication: DRY EYE
     Route: 047
  7. OXYCODONE [Concomitant]
     Active Substance: OXYCODONE
     Indication: ANALGESIC THERAPY
     Route: 048
     Dates: start: 2014
  8. THERATEARS [Concomitant]
     Active Substance: CARBOXYMETHYLCELLULOSE SODIUM
     Indication: DRY EYE
     Route: 047
  9. CRESTOR [Suspect]
     Active Substance: ROSUVASTATIN CALCIUM
     Indication: BLOOD CHOLESTEROL ABNORMAL
     Route: 048
  10. LOSARTAN POTASSIUM. [Concomitant]
     Active Substance: LOSARTAN POTASSIUM
     Indication: HYPERTENSION
     Route: 048
  11. TRAZODONE [Concomitant]
     Active Substance: TRAZODONE HYDROCHLORIDE
     Indication: INSOMNIA
     Route: 048
  12. VITAFUSION WOMENS MULTIVITAMIN [Concomitant]
     Indication: BONE DISORDER
     Dosage: DAILY
     Route: 048
  13. CALCIUM [Concomitant]
     Active Substance: CALCIUM
     Indication: BONE DISORDER
     Route: 048
  14. VITAMIN D [Concomitant]
     Active Substance: CHOLECALCIFEROL
     Indication: BONE DISORDER
     Route: 048
  15. ZETIA [Concomitant]
     Active Substance: EZETIMIBE
     Indication: BLOOD CHOLESTEROL ABNORMAL
     Route: 048

REACTIONS (8)
  - Vein disorder [Unknown]
  - Drug ineffective [Unknown]
  - Constipation [Unknown]
  - Nausea [Unknown]
  - Poor peripheral circulation [Unknown]
  - Abdominal distension [Unknown]
  - Malaise [Unknown]
  - Faecal volume decreased [Not Recovered/Not Resolved]

NARRATIVE: CASE EVENT DATE: 201111
